FAERS Safety Report 6317719-8 (Version None)
Quarter: 2009Q3

REPORT INFORMATION
  Report Type: 
  Country: None (occurrence: None)
  Receive Date: 20090821
  Receipt Date: 20090817
  Transmission Date: 20100115
  Serious: Yes (Other)
  Sender: FDA-Public Use
  Company Number: US-ASTRAZENECA-2009SE08442

PATIENT
  Age: 74 Year
  Sex: Female
  Weight: 72.6 kg

DRUGS (9)
  1. TOPROL-XL [Suspect]
     Indication: HYPERTENSION
     Route: 048
     Dates: start: 19990101
  2. TOPROL-XL [Suspect]
     Route: 048
  3. SIMVASTATIN [Concomitant]
     Indication: BLOOD CHOLESTEROL INCREASED
     Route: 048
  4. POTASSIUM CHLORIDE [Concomitant]
     Dosage: 8 MEGER
     Route: 048
  5. LEVOTHYROXONE [Concomitant]
  6. OMIPRAZOLE [Concomitant]
     Indication: GASTROOESOPHAGEAL REFLUX DISEASE
     Route: 048
  7. ALAZOPRAM [Concomitant]
     Route: 048
  8. FURISOMIDE [Concomitant]
     Route: 048
  9. EXFORGE [Concomitant]
     Indication: BLOOD PRESSURE
     Dosage: 5/160 MG
     Route: 048

REACTIONS (3)
  - BLOOD PRESSURE ABNORMAL [None]
  - KNEE ARTHROPLASTY [None]
  - THROMBOSIS [None]
